FAERS Safety Report 5057677-X (Version None)
Quarter: 2006Q3

REPORT INFORMATION
  Report Type: 
  Country: None (occurrence: None)
  Receive Date: 20060721
  Receipt Date: 20060112
  Transmission Date: 20061208
  Serious: No
  Sender: FDA-Public Use
  Company Number: 432255

PATIENT
  Age: 74 Year
  Sex: Female

DRUGS (5)
  1. AVANDIA [Suspect]
     Dosage: 4MG TWICE PER DAY
     Route: 048
  2. COREG [Suspect]
     Dosage: 3.125MG TWICE PER DAY
     Route: 048
  3. LASIX [Concomitant]
  4. VASOTEC [Concomitant]
  5. FLUID [Concomitant]
     Route: 048

REACTIONS (2)
  - FLUID RETENTION [None]
  - LOCAL SWELLING [None]
